FAERS Safety Report 12141120 (Version 3)
Quarter: 2016Q2

REPORT INFORMATION
  Report Type: Spontaneous
  Country: DK (occurrence: DK)
  Receive Date: 20160303
  Receipt Date: 20160610
  Transmission Date: 20160815
  Serious: Yes (Death, Life-Threatening, Hospitalization)
  Sender: FDA-Public Use
  Company Number: DK-ABBVIE-16K-044-1570516-00

PATIENT
  Age: 37 Year
  Sex: Male
  Weight: 102 kg

DRUGS (1)
  1. HUMIRA [Suspect]
     Active Substance: ADALIMUMAB
     Indication: PSORIASIS
     Route: 058
     Dates: start: 20141208, end: 20151201

REACTIONS (7)
  - Histiocytosis haematophagic [Fatal]
  - Pancytopenia [Fatal]
  - Bronchopulmonary aspergillosis [Fatal]
  - Infection [Fatal]
  - Sepsis [Fatal]
  - Multiple organ dysfunction syndrome [Fatal]
  - Neutropenia [Fatal]

NARRATIVE: CASE EVENT DATE: 2015
